FAERS Safety Report 8878857 (Version 2)
Quarter: 2019Q4

REPORT INFORMATION
  Report Type: Spontaneous
  Country: DE (occurrence: DE)
  Receive Date: 20121026
  Receipt Date: 20191209
  Transmission Date: 20200122
  Serious: Yes (Hospitalization, Other)
  Sender: FDA-Public Use
  Company Number: DE-MYLANLABS-2012S1022256

PATIENT
  Age: 31 Year
  Sex: Female
  Weight: 150 kg

DRUGS (7)
  1. METOPROLOL. [Concomitant]
     Active Substance: METOPROLOL
     Indication: HYPERTENSION
     Dosage: UNK
     Route: 048
     Dates: start: 20090709, end: 20100126
  2. PROTAPHANE [Concomitant]
     Active Substance: INSULIN HUMAN
     Indication: TYPE 2 DIABETES MELLITUS
     Dosage: 30 IU, 1X/DAY
     Route: 058
     Dates: start: 20100126, end: 20100210
  3. METFORMIN [Suspect]
     Active Substance: METFORMIN HYDROCHLORIDE
     Indication: HYPERTENSION
     Dosage: UNK
     Route: 048
     Dates: start: 20090709, end: 20100126
  4. RAMIPRIL. [Suspect]
     Active Substance: RAMIPRIL
     Indication: HYPERTENSION
     Dosage: UNK
     Route: 048
     Dates: start: 20090709, end: 20100126
  5. DOPEGYT [Concomitant]
     Active Substance: METHYLDOPA
     Indication: HYPERTENSION
     Dosage: 250 MG,TID
     Route: 048
     Dates: start: 20100126, end: 20100210
  6. NOVORAPID [Concomitant]
     Active Substance: INSULIN ASPART
     Indication: TYPE 2 DIABETES MELLITUS
     Dosage: 52 IU, 1X/DAY
     Route: 058
     Dates: start: 20100126, end: 20100210
  7. METFORMIN [Suspect]
     Active Substance: METFORMIN HYDROCHLORIDE
     Indication: TYPE 2 DIABETES MELLITUS

REACTIONS (5)
  - Transaminases increased [Unknown]
  - Glycosylated haemoglobin increased [Unknown]
  - Premature delivery [Unknown]
  - Maternal exposure during pregnancy [Unknown]
  - HELLP syndrome [Unknown]

NARRATIVE: CASE EVENT DATE: 20100210
